FAERS Safety Report 22316458 (Version 3)
Quarter: 2023Q2

REPORT INFORMATION
  Report Type: Report from Study
  Country: US (occurrence: US)
  Receive Date: 20230513
  Receipt Date: 20230615
  Transmission Date: 20230721
  Serious: No
  Sender: FDA-Public Use
  Company Number: US-002147023-NVSC2023US108417

PATIENT
  Sex: Male

DRUGS (1)
  1. ENTRESTO [Suspect]
     Active Substance: SACUBITRIL\VALSARTAN
     Indication: Product used for unknown indication
     Dosage: 0.5 DOSAGE FORM (1/2 TAB)
     Route: 065
     Dates: start: 20230508

REACTIONS (4)
  - Ear pruritus [Unknown]
  - Headache [Unknown]
  - Cough [Recovered/Resolved]
  - Wrong technique in product usage process [Unknown]
